FAERS Safety Report 17692043 (Version 1)
Quarter: 2020Q2

REPORT INFORMATION
  Report Type: Spontaneous
  Country: IT (occurrence: IT)
  Receive Date: 20200422
  Receipt Date: 20200422
  Transmission Date: 20200714
  Serious: Yes (Other)
  Sender: FDA-Public Use
  Company Number: IT-TEVA-2020-IT-1224734

PATIENT
  Age: 64 Year
  Sex: Male

DRUGS (11)
  1. DOXORUBICIN [Suspect]
     Active Substance: DOXORUBICIN
     Indication: BLASTIC PLASMACYTOID DENDRITIC CELL NEOPLASIA
     Dosage: RECEIVED TOTAL 3 CYCLES; HYPER-CVAD REGIMEN, COURSE A AND B; INDUCTION CHEMOTHERAPY
     Route: 065
  2. VENETOCLAX. [Suspect]
     Active Substance: VENETOCLAX
     Indication: BLASTIC PLASMACYTOID DENDRITIC CELL NEOPLASIA
     Dosage: 200 MILLIGRAM DAILY; ON DAY 2 OF 28-DAY CYCLE
     Route: 065
  3. AZACITIDINE. [Suspect]
     Active Substance: AZACITIDINE
     Indication: BLASTIC PLASMACYTOID DENDRITIC CELL NEOPLASIA
     Dosage: ON DAYS 1, 2, 3, 4, 5, 8 AND 9 OF 28-DAY CYCLE
     Route: 058
  4. VINCRISTINE [Suspect]
     Active Substance: VINCRISTINE
     Indication: BLASTIC PLASMACYTOID DENDRITIC CELL NEOPLASIA
     Dosage: RECEIVED TOTAL 3 CYCLES; HYPER-CVAD REGIMEN, COURSE A AND B; INDUCTION CHEMOTHERAPY
     Route: 065
  5. DEXAMETHASONE. [Suspect]
     Active Substance: DEXAMETHASONE
     Indication: BLASTIC PLASMACYTOID DENDRITIC CELL NEOPLASIA
     Dosage: RECEIVED TOTAL 3 CYCLES; HYPER-CVAD REGIMEN, COURSE A AND B; INDUCTION CHEMOTHERAPY
     Route: 065
  6. ALLOPURINOL. [Concomitant]
     Active Substance: ALLOPURINOL
     Indication: TUMOUR LYSIS SYNDROME
     Dosage: 300 MILLIGRAM DAILY;
     Route: 065
  7. VENETOCLAX. [Suspect]
     Active Substance: VENETOCLAX
     Indication: BLASTIC PLASMACYTOID DENDRITIC CELL NEOPLASIA
     Dosage: 400 MILLIGRAM DAILY; FROM DAY 3 IN A 28-DAY CYCLE
     Route: 065
  8. VENETOCLAX. [Suspect]
     Active Substance: VENETOCLAX
     Indication: BLASTIC PLASMACYTOID DENDRITIC CELL NEOPLASIA
     Dosage: 100 MILLIGRAM DAILY; ON DAY 1 OF 28-DAY CYCLE; THERAPY CONTINUED, PATIENT WAS RECEIVING 11TH CYCLE A
     Route: 065
  9. METHOTREXATE. [Suspect]
     Active Substance: METHOTREXATE
     Indication: BLASTIC PLASMACYTOID DENDRITIC CELL NEOPLASIA
     Dosage: HIGH DOSE; RECEIVED TOTAL 3 CYCLES; HYPER-CVAD REGIMEN, COURSE A AND B; INDUCTION CHEMOTHERAPY
     Route: 065
  10. CYCLOPHOSPHAMIDE. [Suspect]
     Active Substance: CYCLOPHOSPHAMIDE
     Indication: BLASTIC PLASMACYTOID DENDRITIC CELL NEOPLASIA
     Dosage: HYPERFRACTIONATED;RECEIVED TOTAL 3 CYCLES;HYPER-CVAD REGIMEN, COURSE A AND B; INDUCTION CHEMOTHERAPY
     Route: 065
  11. CYTARABINE. [Suspect]
     Active Substance: CYTARABINE
     Indication: BLASTIC PLASMACYTOID DENDRITIC CELL NEOPLASIA
     Dosage: RECEIVED TOTAL 3 CYCLES; HYPER-CVAD REGIMEN, COURSE A AND B; INDUCTION CHEMOTHERAPY
     Route: 065

REACTIONS (8)
  - Anal abscess [Recovered/Resolved]
  - Soft tissue infection [Recovered/Resolved]
  - Stomatitis [Recovered/Resolved]
  - Anaemia [Recovered/Resolved]
  - Gastrointestinal inflammation [Recovered/Resolved]
  - Infected dermal cyst [Recovered/Resolved]
  - Thrombocytopenia [Recovered/Resolved]
  - Neutropenia [Recovered/Resolved]
